FAERS Safety Report 12863625 (Version 7)
Quarter: 2018Q3

REPORT INFORMATION
  Report Type: Spontaneous
  Country: US (occurrence: US)
  Receive Date: 20161019
  Receipt Date: 20180727
  Transmission Date: 20181010
  Serious: Yes (Hospitalization)
  Sender: FDA-Public Use
  Company Number: US-CELGENEUS-USA-2016092656

PATIENT
  Age: 71 Year
  Sex: Male
  Weight: 88.98 kg

DRUGS (13)
  1. LISINOPRIL. [Concomitant]
     Active Substance: LISINOPRIL
     Indication: HYPERTENSION
     Dosage: 20 MILLIGRAM
     Route: 048
  2. TRANSFUSION (BLOOD) [Concomitant]
     Indication: HAEMOGLOBIN DECREASED
     Route: 065
     Dates: start: 20160829, end: 20160829
  3. ZOLEDRONIC ACID [Concomitant]
     Active Substance: ZOLEDRONIC ACID
     Indication: OSTEOPOROSIS PROPHYLAXIS
     Dosage: 4 MILLIGRAM
     Route: 041
     Dates: start: 20160307
  4. REVLIMID [Suspect]
     Active Substance: LENALIDOMIDE
     Indication: PLASMA CELL MYELOMA
     Dosage: 25 MILLIGRAM
     Route: 048
     Dates: start: 20160229
  5. ATORVASTATIN [Concomitant]
     Active Substance: ATORVASTATIN
     Indication: HYPERCHOLESTEROLAEMIA
     Dosage: 20 MILLIGRAM
     Route: 048
  6. DEXAMETHASONE. [Suspect]
     Active Substance: DEXAMETHASONE
     Indication: PLASMA CELL MYELOMA
     Dosage: 40 MILLIGRAM
     Route: 041
     Dates: start: 20160229
  7. DARATUMUMAB [Suspect]
     Active Substance: DARATUMUMAB
     Indication: PLASMA CELL MYELOMA
     Dosage: 1539 MILLIGRAM
     Route: 041
     Dates: start: 20160229
  8. ATENOLOL. [Concomitant]
     Active Substance: ATENOLOL
     Indication: HYPERTENSION
     Dosage: 50 MILLIGRAM
     Route: 048
  9. RIVAROXABAN [Concomitant]
     Active Substance: RIVAROXABAN
     Indication: ATRIAL FIBRILLATION
     Dosage: 20 MILLIGRAM
     Route: 048
  10. LEVOTHYROXINE. [Concomitant]
     Active Substance: LEVOTHYROXINE
     Indication: HYPOTHYROIDISM
     Dosage: 10 MICROGRAM
     Route: 048
  11. GLIPIZIDE. [Concomitant]
     Active Substance: GLIPIZIDE
     Indication: DIABETES MELLITUS
     Dosage: 5 MILLIGRAM
     Route: 048
  12. DEXAMETHASONE. [Suspect]
     Active Substance: DEXAMETHASONE
     Dosage: 40 MILLIGRAM
     Route: 048
  13. AMIODARONE [Concomitant]
     Active Substance: AMIODARONE
     Indication: ATRIAL FIBRILLATION
     Dosage: 200 MILLIGRAM
     Route: 048

REACTIONS (4)
  - Dysgeusia [Not Recovered/Not Resolved]
  - Pneumonia [Recovered/Resolved]
  - Fatigue [Not Recovered/Not Resolved]
  - Pericardial effusion [Recovered/Resolved]

NARRATIVE: CASE EVENT DATE: 20160718
